FAERS Safety Report 10640875 (Version 1)
Quarter: 2014Q4

REPORT INFORMATION
  Report Type: Spontaneous
  Country: NO (occurrence: None)
  Receive Date: 20141205
  Receipt Date: 20141205
  Transmission Date: 20150529
  Serious: No
  Sender: FDA-Public Use
  Company Number: NO2014GSK022441

PATIENT
  Age: 56 Year
  Sex: Female

DRUGS (1)
  1. SEROXAT (PAROXETINE HYDROCHLORIDE) UNKNOWN [Suspect]
     Active Substance: PAROXETINE HYDROCHLORIDE
     Indication: PRODUCT USED FOR UNKNOWN INDICATION

REACTIONS (9)
  - Dizziness [None]
  - Shock [None]
  - Bruxism [None]
  - Dry mouth [None]
  - Hyperhidrosis [None]
  - Chills [None]
  - Tooth erosion [None]
  - Withdrawal syndrome [None]
  - Tooth disorder [None]
